FAERS Safety Report 6080159-3 (Version None)
Quarter: 2009Q1

REPORT INFORMATION
  Report Type: 
  Country: None (occurrence: None)
  Receive Date: 20090217
  Receipt Date: 20090211
  Transmission Date: 20090719
  Serious: Yes (Hospitalization)
  Sender: FDA-Public Use
  Company Number: ES-PURDUE-GBR_2009_0004856

PATIENT
  Age: 64 Year
  Sex: Male

DRUGS (9)
  1. MST CONTINUS TABLETS 60 MG [Suspect]
     Indication: PAIN
     Dosage: 60 MG, DAILY
     Route: 048
     Dates: start: 20081209, end: 20081213
  2. TRANSTEC [Suspect]
     Indication: DRUG USE FOR UNKNOWN INDICATION
     Route: 062
     Dates: start: 20081101, end: 20081201
  3. ATROVENT [Suspect]
     Indication: PNEUMONIA
     Dosage: 60 CAPSULES
     Route: 055
     Dates: start: 20080101
  4. DORMICUM                           /00036201/ [Suspect]
     Indication: SLEEP DISORDER
     Dosage: 7.5 MG, DAILY
     Route: 048
     Dates: start: 20081211, end: 20081212
  5. DURAGESIC-100 [Suspect]
     Indication: PAIN
     Dosage: 75 MCG, UNK
     Route: 062
     Dates: start: 20081208, end: 20081216
  6. ENANTYUM [Suspect]
     Indication: PAIN
     Dosage: 25 MG, DAILY
     Route: 048
     Dates: start: 20081212, end: 20081216
  7. ESERTIA                            /01588501/ [Suspect]
     Indication: DEPRESSION
     Dosage: 20 MG, DAILY
     Route: 048
     Dates: start: 20081209, end: 20081216
  8. PRIMPERAN                          /00041901/ [Suspect]
     Indication: DRUG USE FOR UNKNOWN INDICATION
     Route: 048
     Dates: start: 20080101
  9. ROCEFALIN                          /00672201/ [Suspect]
     Indication: ANTIBIOTIC THERAPY
     Dosage: 1 GRAM, DAILY
     Route: 030
     Dates: start: 20081212, end: 20081216

REACTIONS (2)
  - HEPATIC ENCEPHALOPATHY [None]
  - HEPATITIS FULMINANT [None]
